FAERS Safety Report 9276530 (Version 1)
Quarter: 2013Q2

REPORT INFORMATION
  Report Type: Spontaneous
  Country: IT (occurrence: IT)
  Receive Date: 20130507
  Receipt Date: 20130507
  Transmission Date: 20140414
  Serious: Yes (Life-Threatening)
  Sender: FDA-Public Use
  Company Number: IT-ASTRAZENECA-2013SE31128

PATIENT
  Age: 20764 Day
  Sex: Male
  Weight: 85 kg

DRUGS (3)
  1. TICAGRELOR [Suspect]
     Indication: ACUTE CORONARY SYNDROME
     Route: 048
     Dates: start: 20130416, end: 20130417
  2. ASPIRINA (ASA) [Concomitant]
     Indication: ACUTE CORONARY SYNDROME
     Dates: start: 20130416, end: 20130416
  3. ATORVASTATIN [Concomitant]
     Indication: ACUTE CORONARY SYNDROME
     Dates: start: 20130416, end: 20130416

REACTIONS (1)
  - Sinus arrest [Recovered/Resolved]
